FAERS Safety Report 5459767-6 (Version None)
Quarter: 2007Q3

REPORT INFORMATION
  Report Type: 
  Country: None (occurrence: None)
  Receive Date: 20070919
  Receipt Date: 20070911
  Transmission Date: 20080115
  Serious: Yes (Other)
  Sender: FDA-Public Use
  Company Number: CR-ROCHE-517422

PATIENT
  Age: 65 Year
  Sex: Female

DRUGS (3)
  1. BONIVA [Suspect]
     Indication: OSTEOPOROSIS
     Route: 048
     Dates: start: 20070901
  2. ATENOLOL [Concomitant]
     Route: 048
  3. ATENOLOL [Concomitant]
     Dosage: DOSE DECREASED.
     Route: 048
     Dates: start: 20070901

REACTIONS (2)
  - ABDOMINAL PAIN [None]
  - HYPOTENSION [None]
